FAERS Safety Report 12374004 (Version 1)
Quarter: 2016Q2

REPORT INFORMATION
  Report Type: Other
  Country: CH (occurrence: CH)
  Receive Date: 20160517
  Receipt Date: 20160517
  Transmission Date: 20160815
  Serious: Yes (Death)
  Sender: FDA-Public Use
  Company Number: CH-ACTELION-A-CH2016-135715

PATIENT
  Age: 28 Year
  Sex: Female

DRUGS (2)
  1. TRACLEER [Suspect]
     Active Substance: BOSENTAN
     Indication: SCIMITAR SYNDROME
  2. TRACLEER [Suspect]
     Active Substance: BOSENTAN
     Indication: PULMONARY HYPERTENSION
     Route: 048

REACTIONS (5)
  - Pulmonary sepsis [Fatal]
  - Right ventricular failure [Fatal]
  - Lung infection [Fatal]
  - Multiple organ dysfunction syndrome [Fatal]
  - Septic shock [Fatal]
